FAERS Safety Report 5661783-6 (Version None)
Quarter: 2008Q1

REPORT INFORMATION
  Report Type: 
  Country: None (occurrence: None)
  Receive Date: 20080312
  Receipt Date: 20080303
  Transmission Date: 20080703
  Serious: Yes (Other)
  Sender: FDA-Public Use
  Company Number: FR-ASTRAZENECA-2008CG00360

PATIENT
  Sex: Female

DRUGS (7)
  1. MOPRAL [Suspect]
     Indication: GASTROOESOPHAGEAL REFLUX DISEASE
     Route: 048
  2. MOPRAL [Suspect]
     Indication: GASTRIC POLYPS
     Route: 048
  3. MOPRAL [Suspect]
     Route: 048
  4. MOPRAL [Suspect]
     Route: 048
  5. MOPRAL [Suspect]
     Route: 048
  6. MOPRAL [Suspect]
     Route: 048
  7. LEXOMIL [Concomitant]
     Route: 048

REACTIONS (11)
  - ABDOMINAL PAIN [None]
  - BLOOD FOLATE DECREASED [None]
  - DIARRHOEA [None]
  - DIZZINESS [None]
  - FALL [None]
  - FATIGUE [None]
  - HYPERGASTRINAEMIA [None]
  - MACROCYTOSIS [None]
  - PH URINE DECREASED [None]
  - PSYCHOMOTOR RETARDATION [None]
  - URINE AMYLASE INCREASED [None]
